FAERS Safety Report 8883887 (Version 2)
Quarter: 2013Q1

REPORT INFORMATION
  Report Type: Spontaneous
  Country: ES (occurrence: ES)
  Receive Date: 20121102
  Receipt Date: 20130305
  Transmission Date: 20140127
  Serious: Yes (Other)
  Sender: FDA-Public Use
  Company Number: ES-ELI_LILLY_AND_COMPANY-ES201210007274

PATIENT
  Sex: Male

DRUGS (3)
  1. FORSTEO [Suspect]
     Indication: OSTEOPOROSIS
     Dosage: UNK
     Dates: start: 201110, end: 201209
  2. CORTICOSTEROIDS [Concomitant]
  3. PREOTACT [Concomitant]
     Indication: OSTEOPOROSIS

REACTIONS (2)
  - Pulmonary mass [Unknown]
  - Hip fracture [Unknown]
